FAERS Safety Report 9263219 (Version 2)
Quarter: 2014Q2

REPORT INFORMATION
  Report Type: Spontaneous
  Country: US (occurrence: US)
  Receive Date: 20130430
  Receipt Date: 20140422
  Transmission Date: 20141212
  Serious: Yes (Death, Hospitalization, Other)
  Sender: FDA-Public Use
  Company Number: US-PFIZER INC-2013012832

PATIENT
  Age: 69 Year
  Sex: Male

DRUGS (7)
  1. INLYTA [Suspect]
     Indication: METASTATIC RENAL CELL CARCINOMA
     Dosage: 5 MG, 2X/DAY
     Route: 048
     Dates: start: 20121212, end: 201301
  2. MEGACE [Concomitant]
     Dosage: 20 ML, 1X/DAY (400 MG/10 ML (40 MG/ML))
     Route: 048
     Dates: start: 20120904
  3. LOPRESSOR [Concomitant]
     Dosage: 25 MG, 1X/DAY
     Route: 048
     Dates: start: 20120627
  4. ADVAIR DISKUS [Concomitant]
     Dosage: 250-50 MCG/DOSE 1 PUFF BY INHALATION ROUTE, 2X/DAY (IN THE MORNING AND EVENING)
     Dates: start: 20120606
  5. SPIRIVA [Concomitant]
     Dosage: 18 UG, 1X/DAY (INHALE 1 CAPSULE BY INHALATION ROUTE)
     Dates: start: 20120627
  6. VENTOLIN HFA [Concomitant]
     Dosage: 90 MCG/ACTUATION 2 PUFFS 6-8 TIMES PER DAY AS NEEDED
     Dates: start: 20120627
  7. IMODIUM AD [Concomitant]
     Dosage: 2 TABLETS (4 MG) AFTER 1ST LOOSE STOOL AND 1 TABLET (2 MG) AFTER EACH NEXT BOWEL MOVEMENT
     Route: 048
     Dates: start: 20120606

REACTIONS (17)
  - Disease progression [Fatal]
  - Metastatic renal cell carcinoma [Fatal]
  - Mental status changes [Unknown]
  - Asthenia [Unknown]
  - Starvation [Unknown]
  - Nausea [Unknown]
  - Diarrhoea [Unknown]
  - Confusional state [Unknown]
  - Eating disorder [Unknown]
  - Skin turgor decreased [Unknown]
  - Dry throat [Unknown]
  - Tachycardia [Unknown]
  - Cardiac murmur [Unknown]
  - Muscle atrophy [Unknown]
  - Pleural effusion [Unknown]
  - Breath sounds abnormal [Unknown]
  - Cachexia [Unknown]
